FAERS Safety Report 9070374 (Version 2)
Quarter: 2013Q1

REPORT INFORMATION
  Report Type: Spontaneous
  Country: US (occurrence: US)
  Receive Date: 20130215
  Receipt Date: 20130218
  Transmission Date: 20140127
  Serious: No
  Sender: FDA-Public Use
  Company Number: US-BAYER-2013-016333

PATIENT
  Age: 21 Year
  Sex: Female

DRUGS (2)
  1. MIRENA [Suspect]
     Indication: CONTRACEPTION
     Dosage: 20 MCG/24HR, CONT
     Route: 015
     Dates: start: 20121010, end: 20121010
  2. MIRENA [Suspect]
     Indication: MENORRHAGIA

REACTIONS (5)
  - Procedural pain [None]
  - Syncope [None]
  - Dizziness [None]
  - Nausea [None]
  - Device difficult to use [None]
